FAERS Safety Report 11179641 (Version 1)
Quarter: 2015Q2

REPORT INFORMATION
  Report Type: Spontaneous
  Country: AU (occurrence: None)
  Receive Date: 20150526
  Receipt Date: 20150526
  Transmission Date: 20150821
  Serious: Yes (Other)
  Sender: FDA-Public Use
  Company Number: GAM-135-15-AU

PATIENT

DRUGS (1)
  1. OCTAGAM IMMUNE GLOBULIN (HUMAN) [Suspect]
     Active Substance: HUMAN IMMUNOGLOBULIN G
     Dates: start: 20150506

REACTIONS (2)
  - Infusion related reaction [None]
  - Blood pressure diastolic increased [None]

NARRATIVE: CASE EVENT DATE: 20150506
